FAERS Safety Report 9891396 (Version 1)
Quarter: 2014Q1

REPORT INFORMATION
  Report Type: Spontaneous
  Country: US (occurrence: None)
  Receive Date: 20140211
  Receipt Date: 20140211
  Transmission Date: 20141002
  Serious: Yes (Hospitalization)
  Sender: FDA-Public Use
  Company Number: None

PATIENT
  Age: 46 Year
  Sex: Female
  Weight: 81.4 kg

DRUGS (2)
  1. GABAPENTIN [Suspect]
     Indication: NEURALGIA
     Route: 048
     Dates: start: 20130710, end: 20131109
  2. TIZANIDINE [Suspect]
     Route: 048
     Dates: start: 20130605, end: 20131109

REACTIONS (3)
  - Fall [None]
  - Mental status changes [None]
  - Dysarthria [None]
